FAERS Safety Report 23528785 (Version 2)
Quarter: 2024Q2

REPORT INFORMATION
  Report Type: Report from Study
  Country: US (occurrence: US)
  Receive Date: 20240215
  Receipt Date: 20240501
  Transmission Date: 20240716
  Serious: Yes (Hospitalization)
  Sender: FDA-Public Use
  Company Number: US-JNJFOC-20240237843

PATIENT
  Age: 73 Year
  Sex: Female
  Weight: 76 kg

DRUGS (20)
  1. DARZALEX FASPRO [Suspect]
     Active Substance: DARATUMUMAB\HYALURONIDASE-FIHJ
     Indication: Plasma cell myeloma
     Route: 058
     Dates: start: 20231009, end: 20231016
  2. POMALIDOMIDE [Suspect]
     Active Substance: POMALIDOMIDE
     Indication: Plasma cell myeloma
     Route: 048
     Dates: start: 20231009, end: 20231020
  3. DEXAMETHASONE [Suspect]
     Active Substance: DEXAMETHASONE
     Indication: Plasma cell myeloma
     Route: 048
     Dates: start: 20231009, end: 20231016
  4. LOPERAMIDE OXIDE [Suspect]
     Active Substance: LOPERAMIDE OXIDE
     Indication: Diarrhoea
     Route: 065
     Dates: start: 20220116
  5. PANTOPRAZOLE [Concomitant]
     Active Substance: PANTOPRAZOLE
     Indication: Prophylaxis
     Dates: start: 20170209
  6. AMLODIPINE [Concomitant]
     Active Substance: AMLODIPINE BESYLATE
     Indication: Hypertonia
     Dates: start: 20190131, end: 20231106
  7. BUDESONIDE\FORMOTEROL [Concomitant]
     Active Substance: BUDESONIDE\FORMOTEROL
     Indication: Asthma
     Dates: start: 20070211
  8. SULFAMETHOXAZOLE\TRIMETHOPRIM [Concomitant]
     Active Substance: SULFAMETHOXAZOLE\TRIMETHOPRIM
     Indication: Prophylaxis
     Dates: start: 20170209
  9. LOPERAMIDE [Concomitant]
     Active Substance: LOPERAMIDE
     Indication: Diarrhoea
     Dates: start: 20231016
  10. FILGRASTIM [Concomitant]
     Active Substance: FILGRASTIM
     Indication: Neutrophil count decreased
     Route: 058
     Dates: start: 20231016, end: 20231022
  11. CHOLESTYRAMINE [Concomitant]
     Active Substance: CHOLESTYRAMINE
     Indication: Diarrhoea
     Route: 048
     Dates: start: 20220116
  12. ENOXAPARIN [Concomitant]
     Active Substance: ENOXAPARIN
     Indication: Thrombosis prophylaxis
     Route: 058
     Dates: start: 20170209
  13. POTASSIUM CHLORIDE [Concomitant]
     Active Substance: POTASSIUM CHLORIDE
     Indication: Prophylaxis
     Route: 048
     Dates: start: 20220116
  14. AZELASTINE HYDROCHLORIDE\FLUTICASONE PROPIONATE [Concomitant]
     Active Substance: AZELASTINE HYDROCHLORIDE\FLUTICASONE PROPIONATE
     Indication: Asthma
     Route: 045
     Dates: start: 20070211
  15. CALCIUM CARBONATE\CHOLECALCIFEROL [Concomitant]
     Active Substance: CALCIUM CARBONATE\CHOLECALCIFEROL
     Indication: Osteoporosis prophylaxis
     Dates: start: 20220116
  16. ESTRADIOL [Concomitant]
     Active Substance: ESTRADIOL
     Indication: Prophylaxis
     Route: 067
     Dates: start: 20070517
  17. ALBUTEROL [Concomitant]
     Active Substance: ALBUTEROL
     Indication: Asthma
     Route: 045
     Dates: start: 20070211
  18. ACYCLOVIR [Concomitant]
     Active Substance: ACYCLOVIR
     Indication: Antiviral prophylaxis
     Route: 048
     Dates: start: 20231006
  19. LEVOTHYROXINE [Concomitant]
     Active Substance: LEVOTHYROXINE\LEVOTHYROXINE SODIUM
     Indication: Hypothyroidism
     Route: 048
     Dates: start: 20181104
  20. ZOLEDRONIC ACID [Concomitant]
     Active Substance: ZOLEDRONIC ACID
     Indication: Prophylaxis
     Route: 042
     Dates: start: 20201029

REACTIONS (6)
  - Pneumonia [Recovered/Resolved]
  - Febrile neutropenia [Recovered/Resolved]
  - Pneumonia [Recovered/Resolved]
  - Fatigue [Recovered/Resolved]
  - Cough [Recovered/Resolved]
  - Pyrexia [Recovered/Resolved]

NARRATIVE: CASE EVENT DATE: 20231021
